FAERS Safety Report 8481935-X (Version None)
Quarter: 2012Q2

REPORT INFORMATION
  Report Type: 
  Country: None (occurrence: None)
  Receive Date: 20120402
  Receipt Date: 20110901
  Transmission Date: 20120825
  Serious: Yes (Life-Threatening, Hospitalization, Other)
  Sender: FDA-Public Use
  Company Number: A-US2011-53533

PATIENT
  Age: 73 Year
  Sex: Female

DRUGS (11)
  1. TRACLEER [Suspect]
     Indication: PULMONARY ARTERIAL HYPERTENSION
     Dosage: 125 MG, BID, ORAL
     Route: 048
     Dates: start: 20100101
  2. LASIX [Concomitant]
  3. PREDNISONE [Concomitant]
  4. PLAQUENIL [Concomitant]
  5. IMURAN [Concomitant]
  6. FENTANYL [Concomitant]
  7. VITAMIN D [Concomitant]
  8. REVATIO [Concomitant]
  9. SYNTHROID [Concomitant]
  10. CALCIUM CARBONATE [Concomitant]
  11. LISINOPRIL [Concomitant]

REACTIONS (5)
  - CARDIAC FAILURE CONGESTIVE [None]
  - OEDEMA PERIPHERAL [None]
  - DYSPNOEA [None]
  - FLUID OVERLOAD [None]
  - OXYGEN CONSUMPTION INCREASED [None]
